FAERS Safety Report 10074727 (Version 1)
Quarter: 2014Q2

REPORT INFORMATION
  Report Type: Spontaneous
  Country: US (occurrence: US)
  Receive Date: 20140414
  Receipt Date: 20140414
  Transmission Date: 20141212
  Serious: Yes (Other)
  Sender: FDA-Public Use
  Company Number: US-PFIZER INC-2014099034

PATIENT
  Age: 60 Year
  Sex: Female
  Weight: 74.83 kg

DRUGS (13)
  1. ENBREL [Suspect]
     Dosage: UNK
     Route: 065
  2. XELJANZ [Suspect]
     Dosage: 5 MG, BID
     Route: 048
  3. VENLAFAXINE [Concomitant]
     Dosage: 37.5 MG, UNK
  4. PERCOCET [Concomitant]
     Dosage: 5-325 MG, UNK
  5. LOSARTAN HCTZ [Concomitant]
     Dosage: 100-12.5 MG, UNK
  6. PREDNISONE [Concomitant]
     Dosage: 5 MG, UNK
  7. METHADONE [Concomitant]
     Dosage: 10 MG, UNK
  8. LEVOTHYROXIN [Concomitant]
     Dosage: 25 MUG, UNK
  9. ZOMIG [Concomitant]
     Dosage: 2.5 MG, UNK
  10. ADVAIR [Concomitant]
     Dosage: UNK, 100/50
  11. ADVIL [Concomitant]
     Dosage: 200 MG, UNK
  12. KLONOPIN [Concomitant]
     Dosage: 0.5 MG, UNK
  13. GABAPENTIN [Concomitant]
     Dosage: 100 MG, UNK

REACTIONS (5)
  - Pancreatic disorder [Unknown]
  - Hiatus hernia [Unknown]
  - Pain [Unknown]
  - Decreased appetite [Unknown]
  - Injection site pain [Unknown]
